FAERS Safety Report 24244873 (Version 1)
Quarter: 2024Q3

REPORT INFORMATION
  Report Type: Spontaneous
  Country: US (occurrence: US)
  Receive Date: 20240823
  Receipt Date: 20240823
  Transmission Date: 20241017
  Serious: No
  Sender: ROCHE
  Company Number: US-ROCHE-10000064398

PATIENT
  Age: 43 Year
  Sex: Female

DRUGS (1)
  1. ACTEMRA ACTPEN [Suspect]
     Active Substance: TOCILIZUMAB
     Indication: Rheumatoid arthritis
     Dosage: STENGTH:162MG/0.9ML.
     Route: 058

REACTIONS (3)
  - Arthralgia [Unknown]
  - Musculoskeletal pain [Unknown]
  - Cystitis [Unknown]
